FAERS Safety Report 19130003 (Version 2)
Quarter: 2021Q2

REPORT INFORMATION
  Report Type: Spontaneous
  Country: JP (occurrence: JP)
  Receive Date: 20210414
  Receipt Date: 20210521
  Transmission Date: 20210717
  Serious: Yes (Other)
  Sender: FDA-Public Use
  Company Number: JP-CELLTRION INC.-2021JP004820

PATIENT

DRUGS (1)
  1. INFLIXIMAB BS FOR I.V. INFUSION100 MG [NK] [Suspect]
     Active Substance: INFLIXIMAB
     Indication: COLITIS ULCERATIVE
     Dosage: 200 MG QD
     Route: 041
     Dates: start: 20210318, end: 20210329

REACTIONS (7)
  - Colitis ulcerative [Unknown]
  - Anorectal operation [Unknown]
  - Overdose [Unknown]
  - Off label use [Unknown]
  - Haemorrhage [Unknown]
  - Pyrexia [Recovered/Resolved]
  - Colon operation [Unknown]

NARRATIVE: CASE EVENT DATE: 20210321
